FAERS Safety Report 8853790 (Version 1)
Quarter: 2012Q4

REPORT INFORMATION
  Report Type: 
  Country: US (occurrence: US)
  Receive Date: 20121022
  Receipt Date: 20121022
  Transmission Date: 20130627
  Serious: Yes (Other)
  Sender: FDA-Public Use
  Company Number: CHPA2012US021640

PATIENT
  Age: 61 Year
  Sex: Female

DRUGS (1)
  1. BENEFIBER UNKNOWN [Suspect]
     Indication: DIVERTICULITIS
     Dosage: Unk, QD
     Route: 048
     Dates: start: 201209, end: 20120928

REACTIONS (5)
  - Throat tightness [Unknown]
  - Rash [Unknown]
  - Throat irritation [Unknown]
  - Urticaria [Unknown]
  - Off label use [Unknown]
